FAERS Safety Report 23940256 (Version 1)
Quarter: 2024Q2

REPORT INFORMATION
  Report Type: Spontaneous
  Country: US (occurrence: US)
  Receive Date: 20240605
  Receipt Date: 20240605
  Transmission Date: 20240716
  Serious: No
  Sender: FDA-Public Use
  Company Number: US-BRISTOL-MYERS SQUIBB COMPANY-2024-090176

PATIENT
  Age: 63 Year
  Sex: Female
  Weight: 73.1 kg

DRUGS (3)
  1. REVLIMID [Suspect]
     Active Substance: LENALIDOMIDE
     Indication: Plasma cell myeloma
     Route: 048
     Dates: start: 20131029, end: 20140117
  2. VELCADE [Concomitant]
     Active Substance: BORTEZOMIB
     Indication: Plasma cell myeloma
     Dosage: , 2 X WEEKLY DAYS 1 AND 4 Q 7 D, 1 WK OFF Q 14 D,
     Route: 042
     Dates: start: 20131029, end: 20140117
  3. DECADRON [Concomitant]
     Active Substance: DEXAMETHASONE
     Indication: Plasma cell myeloma
     Route: 048
     Dates: start: 20131029, end: 20140117

REACTIONS (1)
  - Off label use [Unknown]
